FAERS Safety Report 11163026 (Version 1)
Quarter: 2015Q2

REPORT INFORMATION
  Report Type: Spontaneous
  Country: US (occurrence: US)
  Receive Date: 20150604
  Receipt Date: 20150604
  Transmission Date: 20150821
  Serious: No
  Sender: FDA-Public Use
  Company Number: US-SA-2015SA030819

PATIENT
  Age: 81 Year
  Sex: Female

DRUGS (4)
  1. LANTUS SOLOSTAR [Suspect]
     Active Substance: INSULIN GLARGINE
     Indication: TYPE 2 DIABETES MELLITUS
     Dosage: IN THE AFTERNOON DOSE:14 UNIT(S)
     Route: 065
     Dates: start: 2013
  2. LANTUS SOLOSTAR [Suspect]
     Active Substance: INSULIN GLARGINE
     Indication: TYPE 2 DIABETES MELLITUS
     Dosage: DOSE:16 UNIT(S)
     Route: 065
  3. METFORMIN [Concomitant]
     Active Substance: METFORMIN HYDROCHLORIDE
     Dosage: IN THE MORNING
  4. SOLOSTAR [Concomitant]
     Active Substance: DEVICE

REACTIONS (4)
  - Drug clearance increased [Unknown]
  - Visual acuity reduced [Unknown]
  - Blood glucose increased [Unknown]
  - Memory impairment [Unknown]
